FAERS Safety Report 22121151 (Version 2)
Quarter: 2023Q2

REPORT INFORMATION
  Report Type: Spontaneous
  Country: US (occurrence: US)
  Receive Date: 20230321
  Receipt Date: 20230508
  Transmission Date: 20230722
  Serious: Yes (Other)
  Sender: FDA-Public Use
  Company Number: US-PFIZER INC-202300122034

PATIENT
  Age: 50 Year
  Sex: Female
  Weight: 85.28 kg

DRUGS (4)
  1. METAXALONE [Suspect]
     Active Substance: METAXALONE
     Indication: Muscle relaxant therapy
     Dosage: 800 MG, 2X/DAY
     Dates: start: 20230316, end: 20230318
  2. AMBIEN [Concomitant]
     Active Substance: ZOLPIDEM TARTRATE
     Indication: Insomnia
     Dosage: 5MG TABLET AT BEDTIME
  3. LITHIUM [Concomitant]
     Active Substance: LITHIUM
     Indication: Bipolar disorder
     Dosage: 300 MG, 2X/DAY
  4. LITHIUM [Concomitant]
     Active Substance: LITHIUM
     Indication: Major depression

REACTIONS (7)
  - Loss of consciousness [Unknown]
  - Agitation [Recovering/Resolving]
  - Dyskinesia [Recovering/Resolving]
  - Balance disorder [Recovering/Resolving]
  - Dysarthria [Recovering/Resolving]
  - Fatigue [Unknown]
  - Inappropriate schedule of product administration [Unknown]

NARRATIVE: CASE EVENT DATE: 20230316
